FAERS Safety Report 9119253 (Version 2)
Quarter: 2013Q1

REPORT INFORMATION
  Report Type: Spontaneous
  Country: BR (occurrence: BR)
  Receive Date: 20130226
  Receipt Date: 20130329
  Transmission Date: 20140127
  Serious: Yes (Hospitalization, Other)
  Sender: FDA-Public Use
  Company Number: PHHY2013BR017938

PATIENT
  Sex: Male
  Weight: 90 kg

DRUGS (2)
  1. DIOVAN [Suspect]
     Indication: HYPERTENSION
     Dosage: 1 DF, DAILY
     Dates: start: 2010, end: 2011
  2. OMEPRAZOLE [Concomitant]
     Indication: GASTRIC DISORDER
     Dosage: 1 DF(20MG), QD

REACTIONS (7)
  - Cardiovascular disorder [Recovered/Resolved]
  - Venous occlusion [Recovered/Resolved]
  - Dyspnoea [Recovered/Resolved]
  - Gastric ulcer [Recovered/Resolved]
  - Cardiac disorder [Recovered/Resolved]
  - Heart rate abnormal [Recovered/Resolved]
  - Cough [Recovered/Resolved]
